FAERS Safety Report 7550503-6 (Version None)
Quarter: 2011Q2

REPORT INFORMATION
  Report Type: 
  Country: None (occurrence: None)
  Receive Date: 20110615
  Receipt Date: 20110601
  Transmission Date: 20111010
  Serious: Yes (Hospitalization)
  Sender: FDA-Public Use
  Company Number: JP-ELI_LILLY_AND_COMPANY-JP201105007804

PATIENT
  Age: 44 Year
  Sex: Female

DRUGS (2)
  1. ZYPREXA [Suspect]
     Indication: SCHIZOPHRENIA
     Dosage: 20 MG, QD
     Route: 048
     Dates: start: 20110412, end: 20110508
  2. ZYPREXA [Suspect]
     Dosage: 10 MG, QD
     Route: 048
     Dates: start: 20110509

REACTIONS (2)
  - INSOMNIA [None]
  - HYPOKALAEMIA [None]
